FAERS Safety Report 6886888-3 (Version None)
Quarter: 2010Q3

REPORT INFORMATION
  Report Type: 
  Country: None (occurrence: None)
  Receive Date: 20100730
  Receipt Date: 20100727
  Transmission Date: 20110219
  Serious: Yes (Hospitalization)
  Sender: FDA-Public Use
  Company Number: JP-BAYER-201013670BYL

PATIENT
  Age: 80 Year
  Sex: Male
  Weight: 61 kg

DRUGS (3)
  1. NEXAVAR [Suspect]
     Indication: RENAL CELL CARCINOMA
     Dosage: TOTAL DAILY DOSE: 800 MG  UNIT DOSE: 200 MG
     Route: 048
     Dates: start: 20100706, end: 20100714
  2. MYSLEE [Concomitant]
     Route: 048
     Dates: start: 20100702, end: 20100714
  3. URIEF [Concomitant]
     Route: 048
     Dates: start: 20041029

REACTIONS (1)
  - STEVENS-JOHNSON SYNDROME [None]
